FAERS Safety Report 18034445 (Version 5)
Quarter: 2021Q3

REPORT INFORMATION
  Report Type: Spontaneous
  Country: US (occurrence: US)
  Receive Date: 20200716
  Receipt Date: 20210930
  Transmission Date: 20211014
  Serious: Yes (Other)
  Sender: FDA-Public Use
  Company Number: US-PURDUE-USA-2020-0157386

PATIENT
  Sex: Male

DRUGS (8)
  1. OXYCODONE/ ACETAMINOPHEN TABLETS [Suspect]
     Active Substance: ACETAMINOPHEN\OXYCODONE HYDROCHLORIDE
     Indication: PRODUCT USED FOR UNKNOWN INDICATION
     Dosage: 10/325  QID PRN
     Route: 048
  2. HYDROCODONE BITARTRATE AND ACETAMINOPHEN [Suspect]
     Active Substance: ACETAMINOPHEN\HYDROCODONE BITARTRATE
     Indication: ARTHRALGIA
     Dosage: UNKNOWN, Q12H PRN
     Route: 048
  3. OXYCONTIN [Suspect]
     Active Substance: OXYCODONE HYDROCHLORIDE
     Indication: PAIN MANAGEMENT
     Dosage: 20 MG, BID
     Route: 048
  4. OXYCODONE HCL CR TABLETS (SIMILAR TO NDA 22?272) [Suspect]
     Active Substance: OXYCODONE HYDROCHLORIDE
     Indication: PRODUCT USED FOR UNKNOWN INDICATION
     Dosage: UNKNOWN
     Route: 048
  5. PERCOCET                           /00446701/ [Suspect]
     Active Substance: ACETAMINOPHEN\OXYCODONE HYDROCHLORIDE\OXYCODONE TEREPHTHALATE
     Indication: PAIN MANAGEMENT
     Dosage: 10 MG, UNKNOWN
     Route: 065
  6. OXYCODONE HCL TABLETS (RHODES 91?490) [Suspect]
     Active Substance: OXYCODONE HYDROCHLORIDE
     Indication: PRODUCT USED FOR UNKNOWN INDICATION
     Dosage: UNKNOWN
     Route: 048
  7. HYDROCODONE BITARTRATE (SIMILAR TO NDA 206627) [Suspect]
     Active Substance: HYDROCODONE BITARTRATE
     Indication: PAIN MANAGEMENT
     Dosage: 10 MG, UNKNOWN
     Route: 048
  8. DONEPEZIL. [Concomitant]
     Active Substance: DONEPEZIL
     Indication: DEMENTIA ALZHEIMER^S TYPE
     Dosage: 5 MG, DAILY(ONCE A DAY IN EVENING)
     Route: 048

REACTIONS (14)
  - Drug dependence [Unknown]
  - Insomnia [Unknown]
  - Cerebral disorder [Unknown]
  - Amnesia [Unknown]
  - Limb operation [Unknown]
  - Drug withdrawal syndrome [Unknown]
  - Multiple sclerosis [Unknown]
  - Myocardial infarction [Unknown]
  - Learning disability [Unknown]
  - Cardiac disorder [Unknown]
  - Mental disorder [Unknown]
  - Depression [Unknown]
  - Nervous system disorder [Unknown]
  - Nerve injury [Unknown]
